FAERS Safety Report 8845274 (Version 2)
Quarter: 2012Q4

REPORT INFORMATION
  Report Type: 
  Country: JP (occurrence: JP)
  Receive Date: 20121017
  Receipt Date: 20121116
  Transmission Date: 20130627
  Serious: Yes (Hospitalization)
  Sender: FDA-Public Use
  Company Number: JP-PFIZER INC-2012255470

PATIENT

DRUGS (1)
  1. MEDROL [Suspect]
     Indication: COLLAGEN DISORDER
     Dosage: 2 mg, daily
     Route: 048

REACTIONS (1)
  - Ileus [Unknown]
